FAERS Safety Report 7638854-8 (Version None)
Quarter: 2011Q3

REPORT INFORMATION
  Report Type: 
  Country: None (occurrence: None)
  Receive Date: 20110727
  Receipt Date: 20110720
  Transmission Date: 20111222
  Serious: Yes (Other)
  Sender: FDA-Public Use
  Company Number: JP-PFIZER INC-2010075574

PATIENT
  Age: 5 Year
  Sex: Female

DRUGS (5)
  1. SOMATROPIN RDNA [Suspect]
     Dosage: 1.2 MG, 1X/DAY
     Route: 058
     Dates: start: 20100218
  2. SOMATROPIN RDNA [Suspect]
     Indication: SMALL FOR DATES BABY
     Dosage: 0.5 MG, 1X/DAY
     Route: 058
     Dates: start: 20090528
  3. SOMATROPIN RDNA [Suspect]
     Dosage: 1.3 MG, 1X/DAY
     Route: 058
     Dates: start: 20101021
  4. SOMATROPIN RDNA [Suspect]
     Dosage: 0.6 MG, 1X/DAY
     Route: 058
     Dates: start: 20091119
  5. SOMATROPIN RDNA [Suspect]
     Dosage: 1.0 MG, 1X/DAY
     Route: 058
     Dates: start: 20110310

REACTIONS (1)
  - BRAIN NEOPLASM [None]
